FAERS Safety Report 8154721-8 (Version None)
Quarter: 2012Q1

REPORT INFORMATION
  Report Type: 
  Country: None (occurrence: None)
  Receive Date: 20120221
  Receipt Date: 20120208
  Transmission Date: 20120608
  Serious: Yes (Other)
  Sender: FDA-Public Use
  Company Number: PHHY2012DE011771

PATIENT

DRUGS (1)
  1. GLEEVEC [Suspect]
     Indication: CHRONIC MYELOID LEUKAEMIA
     Dosage: 600 MG/ DAY
     Route: 048

REACTIONS (3)
  - DRY SKIN [None]
  - NEOPLASM MALIGNANT [None]
  - BASAL CELL CARCINOMA [None]
